FAERS Safety Report 7587019-7 (Version None)
Quarter: 2011Q3

REPORT INFORMATION
  Report Type: 
  Country: None (occurrence: None)
  Receive Date: 20110701
  Receipt Date: 20110616
  Transmission Date: 20111222
  Serious: Yes (Hospitalization, Other)
  Sender: FDA-Public Use
  Company Number: PHHY2011CL53485

PATIENT
  Age: 72 Year
  Sex: Female

DRUGS (1)
  1. VALSARTAN  AND HYDROCHLOROTHIAZIDE [Suspect]
     Dosage: 1 DF PER DAY
     Dates: start: 20000101

REACTIONS (1)
  - MYOCARDIAL INFARCTION [None]
